FAERS Safety Report 10402452 (Version 1)
Quarter: 2014Q3

REPORT INFORMATION
  Report Type: Spontaneous
  Country: US (occurrence: None)
  Receive Date: 20140821
  Receipt Date: 20140821
  Transmission Date: 20150326
  Serious: Yes (Other)
  Sender: FDA-Public Use
  Company Number: None

PATIENT
  Age: 52 Year
  Sex: Female
  Weight: 90.72 kg

DRUGS (4)
  1. CAPECITABINE [Suspect]
     Active Substance: CAPECITABINE
     Indication: RECTAL CANCER
     Dosage: 3-500MG/1-150MG TWICE DAILY TAKEN BY MOUTH
     Route: 048
     Dates: start: 20140805, end: 20140808
  2. ZOLOFT [Concomitant]
     Active Substance: SERTRALINE HYDROCHLORIDE
  3. CARAFATE [Concomitant]
     Active Substance: SUCRALFATE
  4. NEXIUM [Concomitant]
     Active Substance: ESOMEPRAZOLE MAGNESIUM

REACTIONS (4)
  - Oesophagitis [None]
  - Dyspnoea [None]
  - Musculoskeletal pain [None]
  - Chest pain [None]

NARRATIVE: CASE EVENT DATE: 20140815
